FAERS Safety Report 10399613 (Version 1)
Quarter: 2014Q3

REPORT INFORMATION
  Report Type: Spontaneous
  Country: US (occurrence: None)
  Receive Date: 20140819
  Receipt Date: 20140819
  Transmission Date: 20150326
  Serious: Yes (Death, Other)
  Sender: FDA-Public Use
  Company Number: None

PATIENT
  Age: 61 Year
  Sex: Male
  Weight: 110 kg

DRUGS (2)
  1. STIVARGA [Suspect]
     Active Substance: REGORAFENIB
     Indication: COLON CANCER METASTATIC
     Route: 048
     Dates: start: 20140228, end: 20140417
  2. STIVARGA [Suspect]
     Active Substance: REGORAFENIB
     Indication: METASTASES TO LIVER
     Route: 048
     Dates: start: 20140228, end: 20140417

REACTIONS (7)
  - Disease progression [None]
  - Palmar-plantar erythrodysaesthesia syndrome [None]
  - Pancreatitis [None]
  - Fatigue [None]
  - Metastases to liver [None]
  - Neuropathy peripheral [None]
  - Asthenia [None]

NARRATIVE: CASE EVENT DATE: 20140417
